FAERS Safety Report 8862330 (Version 3)
Quarter: 2012Q4

REPORT INFORMATION
  Report Type: 
  Country: JP (occurrence: JP)
  Receive Date: 20121026
  Receipt Date: 20121106
  Transmission Date: 20130627
  Serious: Yes (Hospitalization)
  Sender: FDA-Public Use
  Company Number: JP-JNJFOC-20121013155

PATIENT
  Age: 85 Year
  Sex: Female

DRUGS (6)
  1. TRAMCET [Suspect]
     Indication: PAIN
     Dosage: 2 doses x 1 per 1 day
     Route: 048
     Dates: start: 20121018, end: 20121019
  2. DOMPERIDONE [Concomitant]
     Indication: PROPHYLAXIS OF NAUSEA AND VOMITING
     Dosage: 1 doses x 1 per 1 day
     Route: 048
     Dates: start: 20121018, end: 20121019
  3. DOMPERIDONE [Concomitant]
     Indication: PROPHYLAXIS OF NAUSEA AND VOMITING
     Dosage: 1 doses x 1 per 1 day
     Route: 048
     Dates: start: 20121018, end: 20121019
  4. BONALON [Concomitant]
     Indication: OSTEOPOROSIS
     Route: 048
  5. EDIROL [Concomitant]
     Indication: OSTEOPOROSIS
     Route: 048
  6. CELECOX [Concomitant]
     Indication: ANALGESIC THERAPY
     Route: 048

REACTIONS (3)
  - Hypophagia [Recovered/Resolved]
  - Nausea [Recovered/Resolved]
  - Blood pressure decreased [Recovered/Resolved]
